FAERS Safety Report 19702814 (Version 1)
Quarter: 2021Q3

REPORT INFORMATION
  Report Type: Spontaneous
  Country: US (occurrence: US)
  Receive Date: 20210816
  Receipt Date: 20210816
  Transmission Date: 20211014
  Serious: No
  Sender: FDA-Public Use
  Company Number: US-ORGANON-O2108USA000666

PATIENT
  Sex: Female

DRUGS (1)
  1. NEXPLANON [Suspect]
     Active Substance: ETONOGESTREL
     Indication: CONTRACEPTION
     Dosage: ONE EVERY THREE YEARS
     Route: 059
     Dates: start: 2020

REACTIONS (1)
  - Breast pain [Not Recovered/Not Resolved]

NARRATIVE: CASE EVENT DATE: 2020
